FAERS Safety Report 7322481-6 (Version None)
Quarter: 2011Q1

REPORT INFORMATION
  Report Type: 
  Country: None (occurrence: None)
  Receive Date: 20110125
  Receipt Date: 20101130
  Transmission Date: 20110831
  Serious: No
  Sender: FDA-Public Use
  Company Number: US-004412

PATIENT
  Sex: Male

DRUGS (1)
  1. FIRMAGON [Suspect]
     Dosage: (SUBCUTANEOUS), (SUBCUTANEOUS)
     Route: 058

REACTIONS (1)
  - DRUG INEFFECTIVE [None]
